FAERS Safety Report 7605286-8 (Version None)
Quarter: 2011Q3

REPORT INFORMATION
  Report Type: 
  Country: None (occurrence: None)
  Receive Date: 20110713
  Receipt Date: 20110701
  Transmission Date: 20111222
  Serious: Yes (Other)
  Sender: FDA-Public Use
  Company Number: JP-ASTRAZENECA-2011SE15259

PATIENT
  Age: 24795 Day
  Sex: Female

DRUGS (10)
  1. AMIKACIN SULFATE [Concomitant]
     Dates: start: 20110104, end: 20110130
  2. MEROPENEM [Suspect]
     Route: 041
     Dates: start: 20110115, end: 20110130
  3. ITRACONAZOLE [Concomitant]
  4. AMBISOME [Suspect]
     Route: 041
     Dates: start: 20110120, end: 20110130
  5. RECOMODULIN [Concomitant]
     Route: 041
     Dates: start: 20110105, end: 20110110
  6. GRAN [Concomitant]
     Dates: start: 20110115, end: 20110201
  7. ALLOPURINOL [Concomitant]
  8. BIO-THREE [Concomitant]
  9. FAMOTIDINE D [Concomitant]
  10. POLYMYXIN B SULFATE [Concomitant]

REACTIONS (3)
  - HYPERKALAEMIA [None]
  - BLOOD ALKALINE PHOSPHATASE INCREASED [None]
  - BLOOD BILIRUBIN INCREASED [None]
